FAERS Safety Report 8871680 (Version 4)
Quarter: 2012Q4

REPORT INFORMATION
  Report Type: 
  Country: US (occurrence: US)
  Receive Date: 20121030
  Receipt Date: 20121205
  Transmission Date: 20130627
  Serious: No
  Sender: FDA-Public Use
  Company Number: US-009507513-1210USA006681

PATIENT
  Age: 22 Year
  Sex: Female
  Weight: 78.5 kg

DRUGS (1)
  1. IMPLANON [Suspect]
     Indication: CONTRACEPTION
     Dosage: 1 DF, UNK
     Route: 059
     Dates: start: 20090129

REACTIONS (5)
  - Weight increased [Unknown]
  - Medical device complication [Unknown]
  - Device difficult to use [Unknown]
  - Incorrect drug administration duration [Unknown]
  - Medical device complication [Unknown]
